FAERS Safety Report 4793930-2 (Version None)
Quarter: 2005Q4

REPORT INFORMATION
  Report Type: 
  Country: None (occurrence: None)
  Receive Date: 20051011
  Receipt Date: 20050930
  Transmission Date: 20060501
  Serious: Yes (Other)
  Sender: FDA-Public Use
  Company Number: JP-MERCK-0510USA00349

PATIENT
  Age: 50 Year
  Sex: Male

DRUGS (2)
  1. COZAAR [Suspect]
     Indication: HYPERTENSION
     Route: 048
     Dates: start: 20050930, end: 20050930
  2. COZAAR [Suspect]
     Indication: CARDIOPLEGIA
     Route: 048
     Dates: start: 20050930, end: 20050930

REACTIONS (1)
  - SHOCK [None]
